FAERS Safety Report 7232988-8 (Version None)
Quarter: 2011Q1

REPORT INFORMATION
  Report Type: 
  Country: None (occurrence: None)
  Receive Date: 20110119
  Receipt Date: 20110106
  Transmission Date: 20110831
  Serious: Yes (Death, Hospitalization)
  Sender: FDA-Public Use
  Company Number: US-ACTELION-A-NJ2011-43582

PATIENT

DRUGS (3)
  1. REVATIO [Concomitant]
  2. WARFARIN SODIUM [Concomitant]
  3. BOSENTAN TABLET UNKNOWN US MG [Suspect]
     Indication: PULMONARY ARTERIAL HYPERTENSION
     Dosage: UNK
     Route: 048
     Dates: start: 20090508, end: 20110101

REACTIONS (1)
  - DEATH [None]
